FAERS Safety Report 18612640 (Version 1)
Quarter: 2020Q4

REPORT INFORMATION
  Report Type: Not Available
  Country: None (occurrence: None)
  Receive Date: 20201214
  Receipt Date: 20201214
  Transmission Date: 20210114
  Serious: No
  Sender: FDA-Public Use
  Company Number: US-AKORN-156872

PATIENT
  Sex: Female

DRUGS (1)
  1. KETOTIFEN FUMARATE OPHTHALMIC SOLUTION [Suspect]
     Active Substance: KETOTIFEN FUMARATE

REACTIONS (2)
  - Eye pain [Unknown]
  - Eye swelling [Unknown]
